FAERS Safety Report 8834333 (Version 3)
Quarter: 2013Q3

REPORT INFORMATION
  Report Type: Spontaneous
  Country: RU (occurrence: RU)
  Receive Date: 20121010
  Receipt Date: 20130729
  Transmission Date: 20140515
  Serious: Yes (Death)
  Sender: FDA-Public Use
  Company Number: RU-PFIZER INC-2012250204

PATIENT
  Age: 50 Year
  Sex: Female

DRUGS (1)
  1. LIDOCAINE HCL [Suspect]
     Indication: BACK PAIN
     Dosage: 4 ML OF 2% LIDOCAINE SOLUTION, UNK
     Route: 030

REACTIONS (1)
  - Anaphylactic shock [Fatal]
